FAERS Safety Report 17995152 (Version 2)
Quarter: 2020Q3

REPORT INFORMATION
  Report Type: Spontaneous
  Country: US (occurrence: US)
  Receive Date: 20200708
  Receipt Date: 20200909
  Transmission Date: 20201103
  Serious: Yes (Death)
  Sender: FDA-Public Use
  Company Number: US-ROCHE-2637589

PATIENT
  Sex: Female

DRUGS (22)
  1. ASPIRIN. [Concomitant]
     Active Substance: ASPIRIN
  2. CALCIUM [Concomitant]
     Active Substance: CALCIUM
  3. MUPIROCIN. [Concomitant]
     Active Substance: MUPIROCIN
  4. OPSUMIT [Concomitant]
     Active Substance: MACITENTAN
  5. VALACYCLOVIR [Concomitant]
     Active Substance: VALACYCLOVIR HYDROCHLORIDE
  6. KLOR?CON M10 [Concomitant]
     Active Substance: POTASSIUM CHLORIDE
  7. ESBRIET [Suspect]
     Active Substance: PIRFENIDONE
     Indication: PULMONARY ARTERIAL HYPERTENSION
     Dosage: 1 TAB, QD PO, ONGOING : UNKNOWN
     Route: 048
  8. PANTOPRAZOLE [Concomitant]
     Active Substance: PANTOPRAZOLE
  9. PENTOXIFYLLINE. [Concomitant]
     Active Substance: PENTOXIFYLLINE
  10. TYVASO [Concomitant]
     Active Substance: TREPROSTINIL
  11. ALENDRONATE [Concomitant]
     Active Substance: ALENDRONATE SODIUM
  12. FLOVENT HFA [Concomitant]
     Active Substance: FLUTICASONE PROPIONATE
  13. VITAMIN D3 [Concomitant]
     Active Substance: CHOLECALCIFEROL
  14. NITRO [Concomitant]
     Active Substance: NITROGLYCERIN
  15. AMIODARONE [Concomitant]
     Active Substance: AMIODARONE
  16. CARDIZEM CD [Concomitant]
     Active Substance: DILTIAZEM HYDROCHLORIDE
  17. FUROSEMIDE. [Concomitant]
     Active Substance: FUROSEMIDE
  18. GABAPENTIN. [Concomitant]
     Active Substance: GABAPENTIN
  19. NYSTATIN. [Concomitant]
     Active Substance: NYSTATIN
  20. PREDNISONE. [Concomitant]
     Active Substance: PREDNISONE
  21. SOLU?MEDROL [Concomitant]
     Active Substance: METHYLPREDNISOLONE SODIUM SUCCINATE
  22. IPRATROPIUM [Concomitant]
     Active Substance: IPRATROPIUM

REACTIONS (3)
  - Off label use [Fatal]
  - Death [Fatal]
  - Intentional product use issue [Fatal]
